FAERS Safety Report 5683261-0 (Version None)
Quarter: 2008Q1

REPORT INFORMATION
  Report Type: 
  Country: None (occurrence: None)
  Receive Date: 20080327
  Receipt Date: 20080312
  Transmission Date: 20080703
  Serious: Yes (Hospitalization)
  Sender: FDA-Public Use
  Company Number: JP-PFIZER INC-2005090762

PATIENT
  Sex: Male
  Weight: 53 kg

DRUGS (5)
  1. IRINOTECAN HCL [Suspect]
     Indication: NON-SMALL CELL LUNG CANCER
     Dosage: DAILY DOSE:151MG-FREQ:INTERVAL: DAYS 1,8 EVERY 3 WEEKS
     Route: 042
     Dates: start: 20050203, end: 20050527
  2. FRANDOL [Concomitant]
     Indication: HYPERTENSION
  3. URSO 250 [Concomitant]
     Indication: DIARRHOEA
     Route: 048
  4. MAGNESIUM OXIDE [Concomitant]
     Indication: DIARRHOEA
     Route: 048
  5. JUSO [Concomitant]
     Indication: DIARRHOEA
     Route: 048

REACTIONS (7)
  - ALANINE AMINOTRANSFERASE DECREASED [None]
  - ANOREXIA [None]
  - ASPARTATE AMINOTRANSFERASE DECREASED [None]
  - BLOOD POTASSIUM DECREASED [None]
  - BLOOD SODIUM DECREASED [None]
  - INTERSTITIAL LUNG DISEASE [None]
  - PNEUMONITIS [None]
